FAERS Safety Report 15066726 (Version 1)
Quarter: 2018Q2

REPORT INFORMATION
  Report Type: Spontaneous
  Country: ZA (occurrence: ZA)
  Receive Date: 20180626
  Receipt Date: 20180626
  Transmission Date: 20180711
  Serious: Yes (Hospitalization)
  Sender: FDA-Public Use
  Company Number: ZA-PFIZER INC-2018253879

PATIENT
  Age: 52 Year
  Sex: Female

DRUGS (9)
  1. CYMGEN [Suspect]
     Active Substance: DULOXETINE HYDROCHLORIDE
     Dosage: 30 MG, UNK
  2. OMEZ [Suspect]
     Active Substance: OMEPRAZOLE
     Dosage: 40 MG, UNK
  3. CLIMEN [Suspect]
     Active Substance: CYPROTERONE ACETATE\ESTRADIOL VALERATE
     Dosage: UNK
  4. URBANOL [Suspect]
     Active Substance: CLOBAZAM
     Dosage: 10 MG, UNK
  5. DIAGLUCIDE [Suspect]
     Active Substance: GLICLAZIDE
     Dosage: 60 MG, UNK
  6. LANCAP [Suspect]
     Active Substance: LANSOPRAZOLE
     Dosage: 30 MG, UNK
  7. DOPAQUEL [Suspect]
     Active Substance: QUETIAPINE
     Dosage: 100 MG, UNK
  8. JANUMET [Suspect]
     Active Substance: METFORMIN HYDROCHLORIDE\SITAGLIPTIN PHOSPHATE
     Dosage: 1000/50 MG
  9. ACCUMAX CO [Suspect]
     Active Substance: HYDROCHLOROTHIAZIDE\QUINAPRIL HYDROCHLORIDE
     Dosage: 20/12.5 MG, UNK

REACTIONS (1)
  - Depression [Unknown]
